FAERS Safety Report 16683066 (Version 1)
Quarter: 2019Q3

REPORT INFORMATION
  Report Type: Spontaneous
  Country: US (occurrence: US)
  Receive Date: 20190807
  Receipt Date: 20190807
  Transmission Date: 20191007
  Serious: Yes (Life-Threatening, Disabling)
  Sender: FDA-Public Use
  Company Number: None

PATIENT
  Sex: Female

DRUGS (1)
  1. DILAUDID [Suspect]
     Active Substance: HYDROMORPHONE HYDROCHLORIDE
     Route: 042

REACTIONS (22)
  - Pain [None]
  - Migraine with aura [None]
  - Dysgraphia [None]
  - Motor dysfunction [None]
  - Sensory loss [None]
  - Back pain [None]
  - Tremor [None]
  - Seizure [None]
  - Movement disorder [None]
  - Pain in extremity [None]
  - Unevaluable event [None]
  - Headache [None]
  - Shock [None]
  - Dyspnoea [None]
  - Dyskinesia [None]
  - Dysphonia [None]
  - Aphasia [None]
  - Sleep terror [None]
  - Gait disturbance [None]
  - Dysphemia [None]
  - Dizziness [None]
  - Autoscopy [None]

NARRATIVE: CASE EVENT DATE: 20180216
